FAERS Safety Report 7550895-8 (Version None)
Quarter: 2011Q2

REPORT INFORMATION
  Report Type: 
  Country: None (occurrence: None)
  Receive Date: 20110616
  Receipt Date: 20110608
  Transmission Date: 20111010
  Serious: Yes (Other)
  Sender: FDA-Public Use
  Company Number: BR-AMGEN-BRASP2011030089

PATIENT
  Age: 36 Year
  Sex: Male
  Weight: 51 kg

DRUGS (7)
  1. ALENDRONATE SODIUM [Concomitant]
     Dosage: 70 MG, UNK
     Dates: start: 20030101
  2. ENBREL [Suspect]
     Indication: ANKYLOSING SPONDYLITIS
     Dosage: 50 MG, 1X/WEEK
     Route: 058
     Dates: start: 20110501
  3. METHOTREXATE [Concomitant]
     Dosage: UNK
     Dates: start: 20010101
  4. FOLIC ACID [Concomitant]
     Dosage: 1 PER WEEK
     Dates: start: 20010101
  5. COLECALCIFEROL [Concomitant]
     Dosage: UNSPECIFIED DOSAGE, 1X/WEEK
     Dates: start: 20100101
  6. OMEPRAZOLE [Concomitant]
     Dosage: UNK
     Dates: start: 20010101
  7. PREDNISONE [Concomitant]
     Dosage: 10 MG/DAY
     Dates: start: 19910101

REACTIONS (6)
  - GAIT DISTURBANCE [None]
  - PAIN [None]
  - MUSCULOSKELETAL DISCOMFORT [None]
  - MOBILITY DECREASED [None]
  - ARTHRALGIA [None]
  - JOINT WARMTH [None]
